FAERS Safety Report 18840062 (Version 1)
Quarter: 2021Q1

REPORT INFORMATION
  Report Type: Spontaneous
  Country: US (occurrence: US)
  Receive Date: 20210203
  Receipt Date: 20210203
  Transmission Date: 20210419
  Serious: Yes (Death, Hospitalization, Other)
  Sender: FDA-Public Use
  Company Number: US-ADVANZ PHARMA-202101000683

PATIENT

DRUGS (2)
  1. HYDROXYCHLOROQUINE [Suspect]
     Active Substance: HYDROXYCHLOROQUINE
     Indication: SYSTEMIC LUPUS ERYTHEMATOSUS
     Dosage: 200 MG, BID, PLAQUENIL
     Route: 065
  2. METHOTREXATE. [Suspect]
     Active Substance: METHOTREXATE
     Indication: SYSTEMIC LUPUS ERYTHEMATOSUS
     Dosage: 20 MG, WEEKLY
     Route: 065

REACTIONS (10)
  - Disseminated mucormycosis [Unknown]
  - Dysarthria [Unknown]
  - Facial paralysis [Unknown]
  - Carotid artery stenosis [Unknown]
  - Brain injury [Unknown]
  - Electrocardiogram ST segment elevation [Unknown]
  - Cardiac arrest [Fatal]
  - Cerebral infarction [Unknown]
  - Cardiac valve vegetation [Unknown]
  - Hemiparesis [Unknown]
